FAERS Safety Report 19231794 (Version 3)
Quarter: 2022Q4

REPORT INFORMATION
  Report Type: Spontaneous
  Country: GR (occurrence: GR)
  Receive Date: 20210507
  Receipt Date: 20221206
  Transmission Date: 20230113
  Serious: Yes (Death, Hospitalization)
  Sender: FDA-Public Use
  Company Number: GR-PFIZER INC-2021495064

PATIENT
  Age: 57 Year
  Sex: Female

DRUGS (1)
  1. DAPTOMYCIN [Suspect]
     Active Substance: DAPTOMYCIN
     Indication: Staphylococcal bacteraemia
     Dosage: 8 MG/KG (700 MG AS A SINGLE DAILY DOSE)

REACTIONS (1)
  - Cholestatic liver injury [Fatal]
